FAERS Safety Report 4733341-9 (Version None)
Quarter: 2005Q3

REPORT INFORMATION
  Report Type: 
  Country: None (occurrence: None)
  Receive Date: 20050801
  Receipt Date: 20050801
  Transmission Date: 20060218
  Serious: Yes (Hospitalization)
  Sender: FDA-Public Use
  Company Number: None

PATIENT
  Age: 67 Year
  Sex: Male

DRUGS (6)
  1. FUROSEMIDE [Suspect]
     Indication: HYPERTENSION
     Dosage: 40 MG BID
     Dates: start: 20030908
  2. SPIRONOLACTONE [Suspect]
     Indication: HYPERTENSION
     Dosage: 12.5 MG QD
     Dates: start: 20030701
  3. LISINOPRIL [Suspect]
     Indication: HYPERTENSION
     Dosage: 40 MG QD
     Dates: start: 20030701
  4. METOPROLOL [Concomitant]
  5. NITROGLYCERIN [Concomitant]
  6. ZOCOR [Concomitant]

REACTIONS (2)
  - HYPERKALAEMIA [None]
  - RENAL FAILURE ACUTE [None]
